FAERS Safety Report 5160810-2 (Version None)
Quarter: 2006Q4

REPORT INFORMATION
  Report Type: 
  Country: None (occurrence: None)
  Receive Date: 20061129
  Receipt Date: 20060803
  Transmission Date: 20070319
  Serious: Yes (Hospitalization)
  Sender: FDA-Public Use
  Company Number: FR-ABBOTT-06P-056-0339592-00

PATIENT
  Age: 70 Year
  Sex: Male

DRUGS (4)
  1. ZECLAR [Suspect]
     Indication: HELICOBACTER INFECTION
     Route: 048
     Dates: start: 20060710, end: 20060714
  2. INIPOMP [Suspect]
     Indication: HELICOBACTER INFECTION
     Route: 048
     Dates: start: 20060710, end: 20060714
  3. METRONIDAZOLE [Suspect]
     Indication: GIARDIASIS
     Route: 048
     Dates: start: 20060710, end: 20060714
  4. AMOXICILLIN TRIHYDRATE [Suspect]
     Indication: HELICOBACTER INFECTION
     Route: 048
     Dates: start: 20060710, end: 20060714

REACTIONS (6)
  - ANOREXIA [None]
  - DEHYDRATION [None]
  - DIARRHOEA [None]
  - MALAISE [None]
  - PANCREATITIS ACUTE [None]
  - VERTIGO [None]
